FAERS Safety Report 21929038 (Version 3)
Quarter: 2023Q1

REPORT INFORMATION
  Report Type: Spontaneous
  Country: US (occurrence: US)
  Receive Date: 20230131
  Receipt Date: 20230309
  Transmission Date: 20230418
  Serious: Yes (Hospitalization, Other)
  Sender: FDA-Public Use
  Company Number: US-GBT-019766

PATIENT
  Age: 0 Year
  Sex: Male
  Weight: 11.34 kg

DRUGS (1)
  1. OXBRYTA [Suspect]
     Active Substance: VOXELOTOR
     Indication: Foetal exposure during pregnancy
     Route: 015

REACTIONS (4)
  - Pneumonia [Unknown]
  - Foetal exposure during pregnancy [Recovered/Resolved]
  - Nystagmus [Unknown]
  - Underweight [Unknown]

NARRATIVE: CASE EVENT DATE: 20220729
